FAERS Safety Report 9378890 (Version 3)
Quarter: 2013Q3

REPORT INFORMATION
  Report Type: Spontaneous
  Country: US (occurrence: US)
  Receive Date: 20130702
  Receipt Date: 20130718
  Transmission Date: 20140515
  Serious: Yes (Other)
  Sender: FDA-Public Use
  Company Number: US-PFIZER INC-2013192033

PATIENT
  Age: 75 Year
  Sex: Male
  Weight: 81.63 kg

DRUGS (4)
  1. ACCURETIC [Suspect]
     Indication: HYPERTENSION
     Dosage: [QUINAPRIL HCL 20 MG]/ [HYDROCHLOROTHIAZIDE 2.5 MG] 1 ORAL TABLET TWO TIMES A DAY
     Route: 048
  2. NORVASC [Suspect]
     Indication: BLOOD PRESSURE ABNORMAL
     Dosage: UNK
  3. GLUCOTROL XL [Suspect]
     Indication: DIABETES MELLITUS
     Dosage: 5 MG, 2X/DAY
     Route: 048
  4. GLUCOTROL [Concomitant]
     Indication: DIABETES MELLITUS
     Dosage: UNK

REACTIONS (2)
  - Diabetes mellitus [Unknown]
  - Platelet count decreased [Unknown]
